FAERS Safety Report 11433568 (Version 10)
Quarter: 2018Q3

REPORT INFORMATION
  Report Type: Report from Study
  Country: US (occurrence: US)
  Receive Date: 20150831
  Receipt Date: 20180927
  Transmission Date: 20181010
  Serious: Yes (Other)
  Sender: FDA-Public Use
  Company Number: PHEH2015US011113

PATIENT
  Age: 28 Year
  Sex: Female

DRUGS (1)
  1. GILENYA [Suspect]
     Active Substance: FINGOLIMOD HYDROCHLORIDE
     Indication: MULTIPLE SCLEROSIS
     Dosage: 0.5 MG, QD
     Route: 048
     Dates: start: 20150608, end: 20151005

REACTIONS (22)
  - Decreased appetite [Unknown]
  - Palpitations [Recovered/Resolved]
  - Visual impairment [Recovering/Resolving]
  - Headache [Unknown]
  - Somnolence [Recovered/Resolved]
  - Urinary tract infection [Unknown]
  - Muscle spasms [Unknown]
  - Chest pain [Recovering/Resolving]
  - Anxiety [Recovered/Resolved]
  - Depressed mood [Recovered/Resolved]
  - Nausea [Recovered/Resolved]
  - Migraine [Unknown]
  - Loss of consciousness [Unknown]
  - Feeling abnormal [Recovered/Resolved]
  - Fatigue [Recovered/Resolved]
  - Neck pain [Unknown]
  - Multiple sclerosis relapse [Unknown]
  - Intervertebral disc protrusion [Unknown]
  - Visual impairment [Unknown]
  - Ear pain [Unknown]
  - Blood pressure increased [Unknown]
  - Dyspnoea [Recovered/Resolved]

NARRATIVE: CASE EVENT DATE: 20150608
